FAERS Safety Report 9633628 (Version 2)
Quarter: 2013Q4

REPORT INFORMATION
  Report Type: Spontaneous
  Country: NO (occurrence: None)
  Receive Date: 20131017
  Receipt Date: 20131114
  Transmission Date: 20140711
  Serious: Yes (Other)
  Sender: FDA-Public Use
  Company Number: 1911964

PATIENT
  Age: 62 Year
  Sex: Male

DRUGS (9)
  1. DEXMEDETOMIDINE HYDROCHLORIDE [Suspect]
     Indication: SEDATION
     Dosage: 0.7 MG/KG/H DECREASED RAPIDLY TO 0.3 MG/KG/H,
  2. DEXMEDETOMIDINE HYDROCHLORIDE [Suspect]
     Indication: PRODUCT USED FOR UNKNOWN INDICATION
     Dosage: 0.7 MG/KG/H DECREASED RAPIDLY TO 0.3 MG/KG/H,
  3. PROPOFOL [Suspect]
     Indication: SEDATION
  4. KETOBEMIDONE HYDROCHLORIDE [Suspect]
     Indication: PRODUCT USED FOR UNKNOWN INDICATION
     Dosage: 1 TO 2 MG, AS NECESSARY, INTRAVENOUS
     Route: 042
  5. OXAZEPAM [Suspect]
     Indication: PRODUCT USED FOR UNKNOWN INDICATION
     Dosage: 10 TO 15 MG, AS NECESSARY,
  6. HALOPERIDOL [Suspect]
     Indication: PRODUCT USED FOR UNKNOWN INDICATION
     Route: 042
  7. MIDAZOLAM [Suspect]
     Indication: SEDATION
  8. FENTANYL [Suspect]
     Indication: SEDATION
  9. OPIOIDS [Concomitant]

REACTIONS (7)
  - Respiratory failure [None]
  - Respiratory arrest [None]
  - Restlessness [None]
  - Bradycardia [None]
  - Depression [None]
  - Confusional state [None]
  - Hypoventilation [None]
